FAERS Safety Report 9993760 (Version 2)
Quarter: 2014Q1

REPORT INFORMATION
  Report Type: Spontaneous
  Country: US (occurrence: US)
  Receive Date: 20140310
  Receipt Date: 20140310
  Transmission Date: 20141002
  Serious: No
  Sender: FDA-Public Use
  Company Number: US-AMGEN-USASP2013074172

PATIENT
  Age: 63 Year
  Sex: Female
  Weight: 53.1 kg

DRUGS (9)
  1. SENSIPAR [Suspect]
     Indication: HYPERPARATHYROIDISM SECONDARY
     Dosage: 30 MG, TID
     Route: 048
     Dates: start: 20100415
  2. EPOGEN [Concomitant]
     Indication: PRODUCT USED FOR UNKNOWN INDICATION
     Route: 065
  3. RENAGEL                            /01459901/ [Concomitant]
  4. CARVEDILOL [Concomitant]
  5. KEPPRA [Concomitant]
  6. HYDRALAZINE [Concomitant]
  7. ACIDOPHILUS [Concomitant]
  8. COLCHICINE [Concomitant]
  9. OMEGA 3                            /01333901/ [Concomitant]

REACTIONS (5)
  - Epigastric discomfort [Recovering/Resolving]
  - Discomfort [Unknown]
  - Blood parathyroid hormone increased [Unknown]
  - Nausea [Recovering/Resolving]
  - Vomiting [Recovering/Resolving]
